FAERS Safety Report 8197781-0 (Version None)
Quarter: 2012Q1

REPORT INFORMATION
  Report Type: 
  Country: None (occurrence: None)
  Receive Date: 20120309
  Receipt Date: 20120229
  Transmission Date: 20120608
  Serious: Yes (Other)
  Sender: FDA-Public Use
  Company Number: FR-BRISTOL-MYERS SQUIBB COMPANY-16429276

PATIENT
  Age: 51 Year
  Sex: Male

DRUGS (3)
  1. REYATAZ [Suspect]
     Indication: HIV INFECTION
     Route: 048
     Dates: start: 20071101, end: 20120213
  2. ABACAVIR SULFATE/LAMIVUDINE [Suspect]
  3. NORVIR [Suspect]
     Dates: start: 20071101

REACTIONS (3)
  - RENAL COLIC [None]
  - HYPERCHOLESTEROLAEMIA [None]
  - NEPHROLITHIASIS [None]
